FAERS Safety Report 21994302 (Version 5)
Quarter: 2025Q1

REPORT INFORMATION
  Report Type: Spontaneous
  Country: US (occurrence: US)
  Receive Date: 20230215
  Receipt Date: 20250331
  Transmission Date: 20250409
  Serious: Yes (Death, Congenital Anomaly, Other)
  Sender: SANOFI AVENTIS
  Company Number: US-SANOFI-01487355

PATIENT

DRUGS (1)
  1. DUPIXENT [Suspect]
     Active Substance: DUPILUMAB
     Indication: Nasal polyps
     Route: 064
     Dates: start: 2022, end: 202301

REACTIONS (6)
  - Death [Fatal]
  - Hydrops foetalis [Unknown]
  - Talipes [Unknown]
  - Respiratory tract malformation [Unknown]
  - Heart disease congenital [Unknown]
  - Foetal exposure timing unspecified [Unknown]

NARRATIVE: CASE EVENT DATE: 20220101
